FAERS Safety Report 5340588-X (Version None)
Quarter: 2007Q2

REPORT INFORMATION
  Report Type: 
  Country: None (occurrence: None)
  Receive Date: 20070405
  Receipt Date: 20070130
  Transmission Date: 20071010
  Serious: No
  Sender: FDA-Public Use
  Company Number: US200701006065

PATIENT
  Age: 52 Year
  Sex: Male

DRUGS (4)
  1. CYMBALTA [Suspect]
     Indication: SOCIAL PHOBIA
     Dosage: 20 MG, 2/D
     Dates: start: 20070105
  2. PAXIL [Concomitant]
  3. OMEGA-3 FATTY ACIDS (OMEGA 3-FATTY ACIDS) [Concomitant]
  4. VITAMINS NOS (VITAMINS NOS) [Concomitant]

REACTIONS (3)
  - ABDOMINAL DISTENSION [None]
  - DECREASED APPETITE [None]
  - NAUSEA [None]
